FAERS Safety Report 9327028 (Version 1)
Quarter: 2013Q2

REPORT INFORMATION
  Report Type: Spontaneous
  Country: US (occurrence: US)
  Receive Date: 20130604
  Receipt Date: 20130604
  Transmission Date: 20140414
  Serious: No
  Sender: FDA-Public Use
  Company Number: US-009507513-1303USA005589

PATIENT
  Sex: Male
  Weight: 45.35 kg

DRUGS (3)
  1. MIRALAX [Suspect]
     Indication: COLON DYSPLASIA
     Dosage: UNK, QD
     Route: 048
     Dates: start: 20120320, end: 20130208
  2. MIRALAX [Suspect]
     Indication: MEDICAL OBSERVATION
  3. BENEFIBER [Suspect]

REACTIONS (3)
  - Abdominal distension [Unknown]
  - Incorrect drug administration duration [Unknown]
  - Off label use [Unknown]
